FAERS Safety Report 17524031 (Version 1)
Quarter: 2020Q1

REPORT INFORMATION
  Report Type: Spontaneous
  Country: GB (occurrence: GB)
  Receive Date: 20200228
  Receipt Date: 20200228
  Transmission Date: 20200409
  Serious: No
  Sender: FDA-Public Use
  Company Number: None

PATIENT
  Age: 32 Year
  Sex: Female

DRUGS (2)
  1. LEVOTHYROXINE. [Suspect]
     Active Substance: LEVOTHYROXINE
  2. ANTI D [HUMAN RHO(D) IMMUNE GLOBULIN] [Suspect]
     Active Substance: HUMAN RHO(D) IMMUNE GLOBULIN

REACTIONS (12)
  - Temperature regulation disorder [None]
  - Feeling abnormal [None]
  - Amnesia [None]
  - Hypothyroidism [None]
  - Middle insomnia [None]
  - Dizziness [None]
  - Silent thyroiditis [None]
  - Dyspnoea [None]
  - Disturbance in attention [None]
  - Initial insomnia [None]
  - Impaired work ability [None]
  - Malaise [None]
